FAERS Safety Report 6673136-2 (Version None)
Quarter: 2010Q2

REPORT INFORMATION
  Report Type: 
  Country: None (occurrence: None)
  Receive Date: 20100408
  Receipt Date: 20100330
  Transmission Date: 20101027
  Serious: Yes (Death)
  Sender: FDA-Public Use
  Company Number: GXKR2010AT03405

PATIENT
  Age: 88 Year
  Sex: Male

DRUGS (5)
  1. LISINOPRIL+HYDROCHLOROTHIAZIDE SANDOZ (NGX) [Suspect]
     Dosage: 1 DF, QD
     Route: 048
     Dates: start: 20090701
  2. M-DOLOR [Suspect]
     Dosage: AS NEEDED
     Route: 048
     Dates: start: 20091201
  3. SUPRESSIN [Suspect]
     Dosage: 1 DF, QD
     Route: 048
     Dates: start: 19970901
  4. TEBOFORTAN [Suspect]
     Dosage: 1 DF, BID
     Route: 048
     Dates: start: 20010901
  5. SERENOA REPENS EXTRACT [Suspect]
     Dosage: 1 DF, QD
     Route: 048
     Dates: start: 20031001

REACTIONS (2)
  - COMPLETED SUICIDE [None]
  - GUN SHOT WOUND [None]
